FAERS Safety Report 9980642 (Version 2)
Quarter: 2014Q1

REPORT INFORMATION
  Report Type: Report from Study
  Country: IN (occurrence: IN)
  Receive Date: 20140307
  Receipt Date: 20140307
  Transmission Date: 20141002
  Serious: Yes (Other)
  Sender: FDA-Public Use
  Company Number: IN-BRISTOL-MYERS SQUIBB COMPANY-18966143

PATIENT
  Age: 16 Year
  Sex: Male

DRUGS (3)
  1. ARIPIPRAZOLE [Suspect]
     Indication: SCHIZOPHRENIA
     Dosage: LAST DOSE-29DEC12
     Route: 065
     Dates: start: 20120824, end: 20130405
  2. CLOTRIMAZOLE [Concomitant]
     Dates: start: 20121215
  3. CLONAZEPAM [Concomitant]
     Dates: start: 20121222

REACTIONS (1)
  - Psychotic disorder [Recovered/Resolved]
